FAERS Safety Report 12318782 (Version 2)
Quarter: 2016Q2

REPORT INFORMATION
  Report Type: Spontaneous
  Country: BE (occurrence: BE)
  Receive Date: 20160429
  Receipt Date: 20160608
  Transmission Date: 20160815
  Serious: Yes (Death, Congenital Anomaly)
  Sender: FDA-Public Use
  Company Number: BE-BIOGEN-2016BI00229195

PATIENT
  Age: 6 Day

DRUGS (1)
  1. TYSABRI [Suspect]
     Active Substance: NATALIZUMAB
     Indication: EXPOSURE VIA FATHER
     Route: 064
     Dates: start: 20100913

REACTIONS (2)
  - Heart disease congenital [Fatal]
  - Congenital brain damage [Fatal]

NARRATIVE: CASE EVENT DATE: 20160412
